FAERS Safety Report 24034073 (Version 1)
Quarter: 2024Q3

REPORT INFORMATION
  Report Type: Report from Study
  Country: CA (occurrence: CA)
  Receive Date: 20240701
  Receipt Date: 20240701
  Transmission Date: 20241016
  Serious: Yes (Other)
  Sender: ABBVIE
  Company Number: CA-ABBVIE-5818962

PATIENT
  Sex: Female

DRUGS (1)
  1. SKYRIZI [Suspect]
     Active Substance: RISANKIZUMAB-RZAA
     Indication: Psoriasis
     Route: 058
     Dates: start: 20220824

REACTIONS (5)
  - Malignant melanoma [Unknown]
  - Endometriosis [Unknown]
  - Stress [Unknown]
  - Illness [Unknown]
  - Amenorrhoea [Unknown]
